FAERS Safety Report 6976895-4 (Version None)
Quarter: 2010Q3

REPORT INFORMATION
  Report Type: 
  Country: None (occurrence: None)
  Receive Date: 20100910
  Receipt Date: 20100908
  Transmission Date: 20110219
  Serious: Yes (Hospitalization)
  Sender: FDA-Public Use
  Company Number: Z0005390A

PATIENT
  Sex: Female
  Weight: 65.3 kg

DRUGS (5)
  1. GW642444 [Suspect]
     Indication: CHRONIC OBSTRUCTIVE PULMONARY DISEASE
     Dosage: 25MCG PER DAY
     Route: 055
     Dates: start: 20100811
  2. ADVAIR DISKUS 100/50 [Suspect]
     Indication: CHRONIC OBSTRUCTIVE PULMONARY DISEASE
     Route: 055
     Dates: start: 20100714, end: 20100811
  3. ATROVENT [Concomitant]
     Indication: INFECTIVE EXACERBATION OF CHRONIC OBSTRUCTIVE AIRWAYS DISEASE
     Dosage: 1NEB AS REQUIRED
     Route: 055
     Dates: start: 20100823, end: 20100801
  4. ACETAMINOPHEN [Concomitant]
     Indication: INFECTIVE EXACERBATION OF CHRONIC OBSTRUCTIVE AIRWAYS DISEASE
     Dosage: 1000MG FOUR TIMES PER DAY
     Route: 048
     Dates: start: 20100823, end: 20100801
  5. ALBUTEROL SULFATE AUTOHALER [Concomitant]
     Indication: INFECTIVE EXACERBATION OF CHRONIC OBSTRUCTIVE AIRWAYS DISEASE
     Dosage: 1NEB AS REQUIRED
     Route: 055
     Dates: start: 20100823, end: 20100801

REACTIONS (1)
  - INFECTIVE EXACERBATION OF CHRONIC OBSTRUCTIVE AIRWAYS DISEASE [None]
